FAERS Safety Report 9296733 (Version 3)
Quarter: 2013Q2

REPORT INFORMATION
  Report Type: Spontaneous
  Country: US (occurrence: None)
  Receive Date: 20130515
  Receipt Date: 20130605
  Transmission Date: 20140414
  Serious: Yes (Hospitalization)
  Sender: FDA-Public Use
  Company Number: INT_00260_2013

PATIENT
  Age: 57 Year
  Sex: Female
  Weight: 99.79 kg

DRUGS (22)
  1. TAXOL [Suspect]
     Indication: BREAST CANCER FEMALE
     Route: 042
     Dates: start: 20121212
  2. VEGF TRAP-EYE (INJECTION) (VEGF TRAP) [Suspect]
     Indication: DIABETIC RETINAL OEDEMA
     Dosage: INTRAVITREAL
     Dates: start: 20130116
  3. ADRIAMYCIN [Suspect]
     Indication: BREAST CANCER FEMALE
  4. HERCEPTIN [Suspect]
     Indication: BREAST CANCER FEMALE
     Route: 042
     Dates: start: 20121212
  5. CYTOXAN [Suspect]
     Indication: BREAST CANCER FEMALE
  6. NEURONTIN [Concomitant]
  7. NIASPAN [Concomitant]
  8. LIPITOR [Concomitant]
  9. FLUOXETINE [Concomitant]
  10. VITAMIN D NOS [Concomitant]
  11. PERPHENAZINE W/AMITRIPTYLINE [Concomitant]
  12. HYDROCHLOROTHIAZIDE W/LISINOPRIL [Concomitant]
  13. LANTUS [Concomitant]
  14. APIDRA [Concomitant]
  15. NUVIGIL [Concomitant]
  16. PROMETHAZINE HCL [Concomitant]
  17. ZOFRAN/00955301 [Concomitant]
  18. METFORMIN HCL [Concomitant]
  19. NEULASTA [Concomitant]
  20. ARANESP [Concomitant]
  21. AMBIEN [Concomitant]
  22. CYCLOPHOSPHAMID W/DOXORUBICIN [Concomitant]

REACTIONS (7)
  - Fatigue [None]
  - Dyspnoea [None]
  - Urinary tract infection [None]
  - Cardiac failure [None]
  - Electrocardiogram QT prolonged [None]
  - Normochromic normocytic anaemia [None]
  - Neutrophil count decreased [None]
